FAERS Safety Report 8131228-5 (Version None)
Quarter: 2012Q1

REPORT INFORMATION
  Report Type: 
  Country: None (occurrence: None)
  Receive Date: 20120210
  Receipt Date: 20120210
  Transmission Date: 20120608
  Serious: Yes (Hospitalization)
  Sender: FDA-Public Use
  Company Number: None

PATIENT
  Age: 51 Year
  Sex: Male
  Weight: 83.0083 kg

DRUGS (2)
  1. BENDAMUSTINE 120MG/M2 [Suspect]
     Indication: SMALL CELL LUNG CANCER STAGE UNSPECIFIED
     Dosage: 234 MG ON DAYS 1 + 2 OF 21 DAY CYCLE
     Dates: start: 20111228
  2. BENDAMUSTINE 120MG/M2 [Suspect]
     Indication: SMALL CELL LUNG CANCER STAGE UNSPECIFIED
     Dosage: 234 MG ON DAYS 1 + 2 OF 21 DAY CYCLE
     Dates: start: 20111229

REACTIONS (1)
  - PNEUMONIA [None]
